FAERS Safety Report 8409990 (Version 2)
Quarter: 2012Q4

REPORT INFORMATION
  Report Type: 
  Country: US (occurrence: US)
  Receive Date: 20120216
  Receipt Date: 20121012
  Transmission Date: 20130627
  Serious: Yes (Hospitalization)
  Sender: FDA-Public Use
  Company Number: US-ASTRAZENECA-2010SE16712

PATIENT
  Age: 74 Year
  Sex: Male

DRUGS (1)
  1. NEXIUM [Suspect]
     Route: 048
     Dates: start: 2009

REACTIONS (8)
  - Pneumonia [Unknown]
  - Bronchitis [Unknown]
  - Gastritis [Unknown]
  - Ulcer [Unknown]
  - Asthenia [Unknown]
  - Abdominal pain upper [Unknown]
  - Malaise [Unknown]
  - Drug dose omission [Unknown]
